FAERS Safety Report 21295132 (Version 2)
Quarter: 2022Q3

REPORT INFORMATION
  Report Type: Spontaneous
  Country: US (occurrence: US)
  Receive Date: 20220905
  Receipt Date: 20220907
  Transmission Date: 20221027
  Serious: Yes (Other)
  Sender: FDA-Public Use
  Company Number: US-HORIZON THERAPEUTICS-HZN-2022-006657

PATIENT

DRUGS (1)
  1. RAYOS [Suspect]
     Active Substance: PREDNISONE
     Indication: Arthralgia
     Dosage: 10 MG, DAILY
     Route: 065

REACTIONS (3)
  - Achromobacter infection [Recovered/Resolved]
  - Subcutaneous abscess [Recovered/Resolved]
  - Off label use [Unknown]
